FAERS Safety Report 6112215-5 (Version None)
Quarter: 2009Q1

REPORT INFORMATION
  Report Type: 
  Country: None (occurrence: None)
  Receive Date: 20090310
  Receipt Date: 20090224
  Transmission Date: 20090719
  Serious: Yes (Death)
  Sender: FDA-Public Use
  Company Number: CERZ-1000527

PATIENT
  Age: 9 Month
  Sex: Female
  Weight: 6.6 kg

DRUGS (3)
  1. CEREZYME [Suspect]
     Indication: GAUCHER'S DISEASE
     Dosage: 60 U/KG, Q2W, INTRAVENOUS
     Route: 042
     Dates: start: 20081223, end: 20090202
  2. MORPHINE [Concomitant]
  3. ATIVAN [Concomitant]

REACTIONS (3)
  - BRADYCARDIA [None]
  - CARDIO-RESPIRATORY ARREST [None]
  - OXYGEN SATURATION DECREASED [None]
